FAERS Safety Report 6191093-2 (Version None)
Quarter: 2009Q2

REPORT INFORMATION
  Report Type: 
  Country: None (occurrence: None)
  Receive Date: 20090513
  Receipt Date: 20090513
  Transmission Date: 20091009
  Serious: Yes (Hospitalization, Disabling, Other)
  Sender: FDA-Public Use
  Company Number: None

PATIENT
  Age: 62 Year
  Sex: Female
  Weight: 71.2147 kg

DRUGS (7)
  1. HUMIRA [Suspect]
     Indication: RHEUMATOID ARTHRITIS
     Dosage: .8 ML EVERY 2 WKS S.Q.
     Route: 058
     Dates: start: 20070501, end: 20081221
  2. DARVON [Concomitant]
  3. SYNTHROID [Concomitant]
  4. METHOTREXATE [Concomitant]
  5. FOSAMAX [Concomitant]
  6. LAMOTRIGINE [Concomitant]
  7. CLORAZEPATE DIPOTASSIUM [Concomitant]

REACTIONS (9)
  - ARTHRALGIA [None]
  - CONTUSION [None]
  - CONVULSION [None]
  - FALL [None]
  - OSTEOPOROSIS [None]
  - PHARYNGITIS [None]
  - PLEURISY [None]
  - SPINAL COMPRESSION FRACTURE [None]
  - VISION BLURRED [None]
